FAERS Safety Report 9602421 (Version 1)
Quarter: 2013Q4

REPORT INFORMATION
  Report Type: Not Available
  Country: SE (occurrence: SE)
  Receive Date: 20131007
  Receipt Date: 20131007
  Transmission Date: 20140711
  Serious: Yes (Other)
  Sender: FDA-Public Use
  Company Number: SE-IAC JAPAN XML-GBR-2013-0015898

PATIENT
  Sex: Female

DRUGS (2)
  1. NORSPAN [Suspect]
     Indication: PAIN
     Route: 062
  2. WARAN [Suspect]
     Indication: PRODUCT USED FOR UNKNOWN INDICATION

REACTIONS (2)
  - Depressed level of consciousness [Unknown]
  - Respiratory depression [Unknown]
